FAERS Safety Report 5775467-7 (Version None)
Quarter: 2008Q2

REPORT INFORMATION
  Report Type: 
  Country: None (occurrence: None)
  Receive Date: 20080617
  Receipt Date: 20080615
  Transmission Date: 20081010
  Serious: Yes (Death)
  Sender: FDA-Public Use
  Company Number: PHHY2008IL10844

PATIENT
  Age: 67 Year
  Sex: Female

DRUGS (3)
  1. SANDOSTATIN LAR [Suspect]
     Dosage: 30 MG, ONCE/SINGLE
     Route: 030
     Dates: start: 20080512, end: 20080512
  2. ANTIBIOTICS [Concomitant]
  3. DRUG THERAPY NARCOTICS [Concomitant]

REACTIONS (2)
  - DISEASE PROGRESSION [None]
  - PNEUMONIA ASPIRATION [None]
